FAERS Safety Report 8725162 (Version 2)
Quarter: 2012Q4

REPORT INFORMATION
  Report Type: 
  Country: US (occurrence: US)
  Receive Date: 20120815
  Receipt Date: 20120904
  Transmission Date: 20130627
  Serious: Yes (Other)
  Sender: FDA-Public Use
  Company Number: US-BAYER-2012-076329

PATIENT
  Age: 82 Year
  Sex: Male
  Weight: 77.11 kg

DRUGS (5)
  1. XARELTO [Suspect]
     Indication: CEREBROVASCULAR ACCIDENT PROPHYLAXIS
     Dosage: 15 mg, QD
     Route: 048
     Dates: start: 201207, end: 20120721
  2. XARELTO [Interacting]
     Indication: ATRIAL FIBRILLATION
  3. ACETYLSALICYLIC ACID({=100 MG) [Interacting]
     Dosage: 81 mg, UNK
     Route: 048
     Dates: start: 20110426
  4. CARVEDIOL [Concomitant]
     Indication: HEART RATE ABNORMAL
  5. FLECAINIDE [Concomitant]
     Indication: HEART RATE ABNORMAL

REACTIONS (3)
  - Haematuria [Unknown]
  - Platelet count decreased [None]
  - Blood creatinine increased [None]
